FAERS Safety Report 4887013-0 (Version None)
Quarter: 2006Q1

REPORT INFORMATION
  Report Type: 
  Country: None (occurrence: None)
  Receive Date: 20060118
  Receipt Date: 20060105
  Transmission Date: 20060701
  Serious: Yes (Life-Threatening, Hospitalization, Other)
  Sender: FDA-Public Use
  Company Number: 220849

PATIENT
  Age: 68 Year
  Sex: Female
  Weight: 70.3 kg

DRUGS (14)
  1. HERCEPTIN [Suspect]
     Indication: BREAST CANCER METASTATIC
     Dosage: 475 MG, Q3M, INTRAVENOUS
     Route: 042
     Dates: start: 20021024
  2. COUMADIN [Concomitant]
  3. LISINOPRIL [Concomitant]
  4. SYNTHROID [Concomitant]
  5. ZOCOR [Concomitant]
  6. MAXZIDE [Concomitant]
  7. FOSAMAX [Concomitant]
  8. NEXIUM [Concomitant]
  9. VITAMIN B6 [Concomitant]
  10. ASPIRIN [Concomitant]
  11. CALCIUM (CALCIUM NOS) [Concomitant]
  12. MULTIVITAMIN (MULTIVITAMINS NOS) [Concomitant]
  13. LEVAQUIN [Concomitant]
  14. BENADRYL [Concomitant]

REACTIONS (9)
  - CATHETER SEPSIS [None]
  - FATIGUE [None]
  - HAEMOGLOBIN DECREASED [None]
  - HEADACHE [None]
  - IDIOPATHIC THROMBOCYTOPENIC PURPURA [None]
  - MALAISE [None]
  - NAUSEA [None]
  - STAPHYLOCOCCAL SEPSIS [None]
  - VOMITING [None]
